FAERS Safety Report 4533641-1 (Version None)
Quarter: 2004Q4

REPORT INFORMATION
  Report Type: 
  Country: None (occurrence: None)
  Receive Date: 20041221
  Receipt Date: 20041213
  Transmission Date: 20050328
  Serious: Yes (Hospitalization, Disabling)
  Sender: FDA-Public Use
  Company Number: US-GLAXOSMITHKLINE-A0536980A

PATIENT
  Age: 83 Year
  Sex: Female
  Weight: 46.4 kg

DRUGS (2)
  1. SENSODYNE ORIGINAL FLAVOR TOOTHPASTE [Suspect]
     Dates: start: 19610101
  2. VIOXX [Suspect]
     Indication: ARTHRITIS
     Route: 048
     Dates: start: 20030801

REACTIONS (5)
  - ABASIA [None]
  - AMNESIA [None]
  - CEREBROVASCULAR ACCIDENT [None]
  - FEELING ABNORMAL [None]
  - WALKING AID USER [None]
